FAERS Safety Report 17583196 (Version 1)
Quarter: 2020Q1

REPORT INFORMATION
  Report Type: Spontaneous
  Country: CN (occurrence: CN)
  Receive Date: 20200326
  Receipt Date: 20200326
  Transmission Date: 20200409
  Serious: Yes (Other)
  Sender: FDA-Public Use
  Company Number: CN-ROCHE-2569619

PATIENT
  Age: 80 Year
  Sex: Male

DRUGS (12)
  1. MABTHERA [Suspect]
     Active Substance: RITUXIMAB
     Dosage: ON DAY 0
     Route: 065
     Dates: start: 20180503
  2. MABTHERA [Suspect]
     Active Substance: RITUXIMAB
     Dosage: ON DAY 0
     Route: 065
     Dates: start: 20200212
  3. PREDNISONE. [Concomitant]
     Active Substance: PREDNISONE
     Indication: DIFFUSE LARGE B-CELL LYMPHOMA
     Dosage: FROM DAY 1 TO DAY 5
     Route: 065
     Dates: start: 20171018
  4. MABTHERA [Suspect]
     Active Substance: RITUXIMAB
     Indication: DIFFUSE LARGE B-CELL LYMPHOMA
     Dosage: ON DAY 0
     Route: 065
     Dates: start: 20171018
  5. ADRIAMYCIN [Concomitant]
     Active Substance: DOXORUBICIN HYDROCHLORIDE
     Indication: DIFFUSE LARGE B-CELL LYMPHOMA
     Dosage: ON DAY 1
     Route: 065
     Dates: start: 20171018
  6. IBRUTINIB [Concomitant]
     Active Substance: IBRUTINIB
     Indication: DIFFUSE LARGE B-CELL LYMPHOMA
     Route: 065
     Dates: start: 20200212
  7. GEMCITABINE. [Concomitant]
     Active Substance: GEMCITABINE
     Indication: DIFFUSE LARGE B-CELL LYMPHOMA
     Dosage: ON DAY 1
     Route: 065
     Dates: start: 20180503
  8. OXALIPLATIN. [Concomitant]
     Active Substance: OXALIPLATIN
     Dosage: ON DAY 1
     Route: 065
     Dates: start: 20200212
  9. CYCLOPHOSPHAMIDE. [Concomitant]
     Active Substance: CYCLOPHOSPHAMIDE
     Indication: DIFFUSE LARGE B-CELL LYMPHOMA
     Dosage: ON DAY 1
     Route: 065
     Dates: start: 20171018
  10. VINDESINE [Concomitant]
     Active Substance: VINDESINE
     Indication: DIFFUSE LARGE B-CELL LYMPHOMA
     Dosage: ON DAY 1
     Route: 065
     Dates: start: 20171018
  11. GEMCITABINE. [Concomitant]
     Active Substance: GEMCITABINE
     Dosage: ON DAY 1 AND DAY 8
     Route: 065
     Dates: start: 20200212
  12. OXALIPLATIN. [Concomitant]
     Active Substance: OXALIPLATIN
     Indication: DIFFUSE LARGE B-CELL LYMPHOMA
     Dosage: ON DAY 1
     Route: 065
     Dates: start: 20180503

REACTIONS (4)
  - Exercise tolerance decreased [Unknown]
  - Cerebral atrophy [Unknown]
  - Lacunar infarction [Unknown]
  - Granulocyte count decreased [Unknown]

NARRATIVE: CASE EVENT DATE: 2018
